FAERS Safety Report 5713386-2 (Version None)
Quarter: 2008Q2

REPORT INFORMATION
  Report Type: 
  Country: None (occurrence: None)
  Receive Date: 20080422
  Receipt Date: 20080410
  Transmission Date: 20081010
  Serious: Yes (Hospitalization)
  Sender: FDA-Public Use
  Company Number: PFIZER INC-2008031475

PATIENT
  Sex: Male
  Weight: 109 kg

DRUGS (11)
  1. SU-011,248 [Suspect]
     Indication: MALIGNANT MELANOMA
     Route: 048
  2. ACETYLSALICYLIC ACID SRT [Concomitant]
  3. METFORMIN HCL [Concomitant]
  4. LIPITOR [Concomitant]
  5. SPIRIVA [Concomitant]
  6. ADVAIR HFA [Concomitant]
  7. ASCORBIC ACID [Concomitant]
  8. FISH OIL [Concomitant]
  9. INSULIN [Concomitant]
  10. ALBUTEROL [Concomitant]
  11. MAGNESIUM [Concomitant]

REACTIONS (4)
  - DYSPHAGIA [None]
  - FAECES DISCOLOURED [None]
  - GASTROOESOPHAGEAL REFLUX DISEASE [None]
  - HAEMORRHAGE [None]
